FAERS Safety Report 8469383-X (Version None)
Quarter: 2012Q2

REPORT INFORMATION
  Report Type: 
  Country: None (occurrence: None)
  Receive Date: 20120626
  Receipt Date: 20120620
  Transmission Date: 20120825
  Serious: Yes (Hospitalization)
  Sender: FDA-Public Use
  Company Number: FR-PFIZER INC-2012147989

PATIENT
  Age: 43 Year
  Sex: Female

DRUGS (2)
  1. RELPAX [Suspect]
     Indication: MIGRAINE
     Dosage: UNK, ON REQUEST
     Route: 048
     Dates: start: 20120301
  2. NORFLOXACIN [Suspect]
     Indication: CYSTITIS
     Dosage: 400 MG, 1 ON REQUEST
     Route: 048
     Dates: start: 20070101, end: 20120417

REACTIONS (1)
  - RHABDOMYOLYSIS [None]
